FAERS Safety Report 6215064-2 (Version None)
Quarter: 2009Q2

REPORT INFORMATION
  Report Type: 
  Country: None (occurrence: None)
  Receive Date: 20090604
  Receipt Date: 20090211
  Transmission Date: 20091009
  Serious: No
  Sender: FDA-Public Use
  Company Number: US-ASTRAZENECA-2009UW04014

PATIENT
  Sex: Male

DRUGS (3)
  1. PRILOSEC [Suspect]
     Route: 048
     Dates: start: 20080501
  2. ARMOUR [Concomitant]
     Indication: HYPOTHYROIDISM
  3. CYTOMEL [Concomitant]
     Indication: HYPOTHYROIDISM

REACTIONS (2)
  - BLOOD THYROID STIMULATING HORMONE INCREASED [None]
  - TRI-IODOTHYRONINE FREE INCREASED [None]
